FAERS Safety Report 6302769-8 (Version None)
Quarter: 2009Q3

REPORT INFORMATION
  Report Type: 
  Country: None (occurrence: None)
  Receive Date: 20090810
  Receipt Date: 20090806
  Transmission Date: 20100115
  Serious: Yes (Hospitalization, Other)
  Sender: FDA-Public Use
  Company Number: CA-BRISTOL-MYERS SQUIBB COMPANY-14698047

PATIENT
  Age: 58 Year
  Sex: Male

DRUGS (2)
  1. ARIPIPRAZOLE [Suspect]
     Dosage: NO OF COURSES = 4; STARTED ON 5MG,16JUN-10MG,23JUN-15MG,30JUN-20MG,06JUL09-20MG
     Route: 048
     Dates: start: 20090609, end: 20090708
  2. TUMS [Concomitant]
     Dates: start: 20060101

REACTIONS (2)
  - HALLUCINATION, AUDITORY [None]
  - HALLUCINATION, VISUAL [None]
